FAERS Safety Report 10565639 (Version 1)
Quarter: 2014Q4

REPORT INFORMATION
  Report Type: Spontaneous
  Country: US (occurrence: US)
  Receive Date: 20141105
  Receipt Date: 20141105
  Transmission Date: 20150529
  Serious: No
  Sender: FDA-Public Use
  Company Number: US-ELI_LILLY_AND_COMPANY-US201410006670

PATIENT
  Sex: Male

DRUGS (5)
  1. METFORMIN [Concomitant]
     Active Substance: METFORMIN HYDROCHLORIDE
     Route: 065
  2. GLIMEPIRIDE. [Concomitant]
     Active Substance: GLIMEPIRIDE
     Route: 065
  3. HUMALOG [Suspect]
     Active Substance: INSULIN LISPRO
     Indication: PRODUCT USED FOR UNKNOWN INDICATION
     Dosage: 40 U, BID
     Route: 065
     Dates: start: 201410
  4. NOVOLOG [Suspect]
     Active Substance: INSULIN ASPART
     Indication: PRODUCT USED FOR UNKNOWN INDICATION
     Route: 065
  5. ATORVASTATIN [Concomitant]
     Active Substance: ATORVASTATIN
     Route: 065

REACTIONS (3)
  - Incorrect product storage [Unknown]
  - Wrong drug administered [Unknown]
  - Injection site haemorrhage [Unknown]
